FAERS Safety Report 7918558-4 (Version None)
Quarter: 2011Q4

REPORT INFORMATION
  Report Type: 
  Country: None (occurrence: None)
  Receive Date: 20111116
  Receipt Date: 20100428
  Transmission Date: 20120403
  Serious: No
  Sender: FDA-Public Use
  Company Number: US-BAYER-201021431NA

PATIENT

DRUGS (1)
  1. AVELOX [Suspect]

REACTIONS (1)
  - HYPOTENSION [None]
